FAERS Safety Report 10098080 (Version 2)
Quarter: 2014Q2

REPORT INFORMATION
  Report Type: Spontaneous
  Country: US (occurrence: US)
  Receive Date: 20140423
  Receipt Date: 20140506
  Transmission Date: 20141212
  Serious: No
  Sender: FDA-Public Use
  Company Number: US-B.I. PHARMACEUTICALS,INC./RIDGEFIELD-2014-BI-17141BP

PATIENT
  Age: 56 Year
  Sex: Male
  Weight: 73 kg

DRUGS (10)
  1. SPIRIVA [Suspect]
     Indication: CHRONIC OBSTRUCTIVE PULMONARY DISEASE
     Dosage: 18 MCG
     Route: 055
     Dates: start: 2012
  2. ALBUTEROL [Concomitant]
     Dosage: FORMULATION: INHALATION SPRAY
     Route: 055
  3. COREG [Concomitant]
     Indication: CARDIAC DISORDER
     Dosage: 12.5 MG
     Route: 048
  4. ASPIRIN [Concomitant]
     Indication: CARDIAC DISORDER
     Dosage: 325 MG
     Route: 048
  5. RANEXA [Concomitant]
     Indication: CARDIAC DISORDER
     Dosage: 1000 MG
     Route: 048
  6. ZOLOFT [Concomitant]
     Dosage: 25 MG
     Route: 048
  7. EFFIENT [Concomitant]
     Dosage: 10 MG
     Route: 048
  8. CRESTOR [Concomitant]
     Dosage: 10 MG
     Route: 048
  9. NIACIN [Concomitant]
     Dosage: 2000 MG
     Route: 048
  10. ELAVIL [Concomitant]
     Dosage: 10 MG
     Route: 048

REACTIONS (3)
  - Dyspnoea [Recovered/Resolved]
  - Product quality issue [Unknown]
  - Product quality issue [Unknown]
